FAERS Safety Report 7651567-1 (Version None)
Quarter: 2011Q3

REPORT INFORMATION
  Report Type: 
  Country: None (occurrence: None)
  Receive Date: 20110802
  Receipt Date: 20110728
  Transmission Date: 20111222
  Serious: Yes (Death, Hospitalization, Disabling, Other)
  Sender: FDA-Public Use
  Company Number: JP-ROCHE-752800

PATIENT
  Sex: Male

DRUGS (42)
  1. SANDIMMUNE [Suspect]
     Route: 041
     Dates: start: 20101013, end: 20101119
  2. DEXAMETHASONE [Suspect]
     Route: 041
     Dates: start: 20100924, end: 20100930
  3. DEXAMETHASONE [Suspect]
     Route: 041
     Dates: start: 20101013, end: 20101017
  4. DEXAMETHASONE [Suspect]
     Route: 041
     Dates: start: 20101025, end: 20101025
  5. NEORAL [Suspect]
     Route: 048
     Dates: start: 20101013, end: 20101119
  6. FAMOTIDINE [Concomitant]
     Route: 048
     Dates: start: 20100910, end: 20110103
  7. IBRUPROFEN [Concomitant]
     Route: 048
  8. SANDIMMUNE [Suspect]
     Indication: JUVENILE ARTHRITIS
     Route: 041
     Dates: start: 20100924, end: 20100926
  9. SANDIMMUNE [Suspect]
     Route: 041
     Dates: start: 20101001, end: 20101003
  10. PREDNISOLONE [Suspect]
     Route: 048
     Dates: start: 20100919, end: 20100921
  11. DEXAMETHASONE [Suspect]
     Route: 041
     Dates: start: 20101026, end: 20101030
  12. DEXAMETHASONE [Suspect]
     Route: 041
     Dates: start: 20101119, end: 20101124
  13. DEXAMETHASONE [Suspect]
     Route: 041
     Dates: start: 20101125, end: 20101130
  14. DEXAMETHASONE [Suspect]
     Route: 041
     Dates: start: 20101201, end: 20101210
  15. DEXAMETHASONE [Suspect]
     Route: 041
     Dates: start: 20110104, end: 20110117
  16. METHYLPREDNISOLONE [Suspect]
     Route: 042
     Dates: start: 20100922, end: 20100924
  17. NEORAL [Suspect]
     Dosage: PERORAL LIQUID PREPARATION
     Route: 048
     Dates: start: 20101004, end: 20101007
  18. URSO 250 [Concomitant]
     Route: 048
     Dates: start: 20101211, end: 20110103
  19. TOCILIZUMAB [Suspect]
     Route: 041
     Dates: start: 20101116, end: 20101116
  20. TOCILIZUMAB [Suspect]
     Route: 041
     Dates: start: 20101214, end: 20101228
  21. ENALAPRIL MALEATE [Concomitant]
     Route: 048
     Dates: start: 20101008, end: 20110103
  22. SANDIMMUNE [Suspect]
     Route: 041
     Dates: start: 20101211, end: 20110104
  23. DEXAMETHASONE [Suspect]
     Route: 041
     Dates: start: 20101001, end: 20101012
  24. DEXAMETHASONE [Suspect]
     Route: 041
     Dates: start: 20101221, end: 20101227
  25. SANDIMMUNE [Suspect]
     Route: 041
     Dates: start: 20100927, end: 20100930
  26. SANDIMMUNE [Suspect]
     Route: 041
     Dates: start: 20101004, end: 20101007
  27. PREDNISOLONE [Suspect]
     Route: 048
     Dates: start: 20101221, end: 20110103
  28. DEXAMETHASONE [Suspect]
     Route: 041
     Dates: start: 20101018, end: 20101025
  29. DEXAMETHASONE [Suspect]
     Route: 041
     Dates: start: 20101228, end: 20110103
  30. METHYLPREDNISOLONE [Suspect]
     Route: 042
     Dates: start: 20100915, end: 20100918
  31. DIDRONEL [Concomitant]
     Route: 048
     Dates: start: 20101210, end: 20101224
  32. PREDNISOLONE [Suspect]
     Dosage: PERORAL AGENT
     Route: 048
     Dates: start: 20100910, end: 20100914
  33. NEORAL [Suspect]
     Route: 048
     Dates: start: 20101211, end: 20110104
  34. TOCILIZUMAB [Suspect]
     Indication: JUVENILE ARTHRITIS
     Route: 041
     Dates: start: 20101109, end: 20101109
  35. PREDNISOLONE [Suspect]
     Route: 048
     Dates: start: 20101001, end: 20101119
  36. DEXAMETHASONE [Suspect]
     Route: 041
     Dates: start: 20110124
  37. NEORAL [Suspect]
     Route: 048
     Dates: start: 20101008, end: 20101012
  38. DIDRONEL [Concomitant]
     Route: 048
     Dates: start: 20101210, end: 20101224
  39. SANDIMMUNE [Suspect]
     Route: 041
     Dates: start: 20101008, end: 20101012
  40. SANDIMMUNE [Suspect]
     Route: 041
     Dates: start: 20101119, end: 20101122
  41. SANDIMMUNE [Suspect]
     Route: 041
     Dates: start: 20101123, end: 20101210
  42. DEXAMETHASONE [Suspect]
     Route: 041
     Dates: start: 20101211, end: 20101220

REACTIONS (14)
  - CARDIAC FAILURE [None]
  - CYTOMEGALOVIRUS TEST POSITIVE [None]
  - RESPIRATORY FAILURE [None]
  - HYPERGLYCAEMIA [None]
  - ESCHERICHIA BACTERAEMIA [None]
  - PLEURAL EFFUSION [None]
  - PLATELET COUNT DECREASED [None]
  - VASCULITIS [None]
  - RENAL FAILURE [None]
  - HISTIOCYTOSIS HAEMATOPHAGIC [None]
  - ABDOMINAL DISCOMFORT [None]
  - HYPERLIPIDAEMIA [None]
  - HEPATIC FAILURE [None]
  - TOXIC ENCEPHALOPATHY [None]
